FAERS Safety Report 23827753 (Version 1)
Quarter: 2024Q2

REPORT INFORMATION
  Report Type: Spontaneous
  Country: US (occurrence: US)
  Receive Date: 20240507
  Receipt Date: 20240507
  Transmission Date: 20240715
  Serious: No
  Sender: FDA-Public Use
  Company Number: US-BEH-2024171674

PATIENT
  Sex: Male
  Weight: 90.703 kg

DRUGS (2)
  1. HIZENTRA [Suspect]
     Active Substance: HUMAN IMMUNOGLOBULIN G
     Indication: Selective polysaccharide antibody deficiency
     Dosage: 9 G, QW
     Route: 058
     Dates: start: 202305
  2. HIZENTRA [Suspect]
     Active Substance: HUMAN IMMUNOGLOBULIN G
     Dosage: 17 G, QW
     Route: 058

REACTIONS (3)
  - Infection [Unknown]
  - Infection [Unknown]
  - Therapy change [Unknown]

NARRATIVE: CASE EVENT DATE: 20240416
